FAERS Safety Report 21358209 (Version 4)
Quarter: 2022Q4

REPORT INFORMATION
  Report Type: Report from Study
  Country: JP (occurrence: JP)
  Receive Date: 20220921
  Receipt Date: 20221128
  Transmission Date: 20230112
  Serious: Yes (Hospitalization, Other)
  Sender: FDA-Public Use
  Company Number: JP-CHUGAI-2022035911

PATIENT
  Age: 75 Year
  Sex: Male
  Weight: 84.5 kg

DRUGS (5)
  1. ATEZOLIZUMAB [Suspect]
     Active Substance: ATEZOLIZUMAB
     Indication: Hepatocellular carcinoma
     Dosage: 1200 MILLIGRAM, ONCE/3WEEKS?DATE RECEIVED ON 06/JUL/2022, 27/JUL/2022 AND 17/AUG/2022
     Route: 041
     Dates: start: 20220614, end: 20220817
  2. BEVACIZUMAB [Suspect]
     Active Substance: BEVACIZUMAB
     Indication: Hepatocellular carcinoma
     Dosage: 15 MILLIGRAM/KILOGRAM, ONCE/3WEEKS?DATE RECEIVED ON 06/JUL/2022, 27/JUL/2022 AND 17/AUG/2022
     Route: 041
     Dates: start: 20220614, end: 20220817
  3. MAGNESIUM OXIDE [Concomitant]
     Active Substance: MAGNESIUM OXIDE
  4. MENATETRENONE [Concomitant]
     Active Substance: MENATETRENONE
  5. CELECOXIB [Concomitant]
     Active Substance: CELECOXIB

REACTIONS (4)
  - Pulmonary embolism [Not Recovered/Not Resolved]
  - Tumour thrombosis [Unknown]
  - Deep vein thrombosis [Unknown]
  - Liver carcinoma ruptured [Unknown]

NARRATIVE: CASE EVENT DATE: 20220902
